FAERS Safety Report 5741001-0 (Version None)
Quarter: 2008Q2

REPORT INFORMATION
  Report Type: 
  Country: None (occurrence: None)
  Receive Date: 20080516
  Receipt Date: 20080509
  Transmission Date: 20081010
  Serious: Yes (Hospitalization, Congenital Anomaly, Other)
  Sender: FDA-Public Use
  Company Number: GB-ABBOTT-07P-167-0374244-00

PATIENT
  Sex: Male
  Weight: 4.04 kg

DRUGS (1)
  1. VALPROIC ACID [Suspect]
     Indication: DRUG EXPOSURE DURING PREGNANCY

REACTIONS (29)
  - ABNORMAL BEHAVIOUR [None]
  - AFFECT LABILITY [None]
  - ALPHA HAEMOLYTIC STREPTOCOCCAL INFECTION [None]
  - C-REACTIVE PROTEIN INCREASED [None]
  - COGNITIVE DISORDER [None]
  - COMMUNICATION DISORDER [None]
  - CONGENITAL NOSE MALFORMATION [None]
  - COORDINATION ABNORMAL [None]
  - CYANOSIS [None]
  - DEVELOPMENTAL DELAY [None]
  - DEXTROCARDIA [None]
  - DROOLING [None]
  - DRUG EXPOSURE DURING PREGNANCY [None]
  - DYSMORPHISM [None]
  - ECZEMA [None]
  - EXPRESSIVE LANGUAGE DISORDER [None]
  - FEEDING DISORDER [None]
  - FOETAL ANTICONVULSANT SYNDROME [None]
  - FOOT DEFORMITY [None]
  - HYPOKINESIA [None]
  - IMMOTILE CILIA SYNDROME [None]
  - LARGE FOR DATES BABY [None]
  - LIP DISORDER [None]
  - NEURODEVELOPMENTAL DISORDER [None]
  - NEUTROPHILIA [None]
  - PNEUMONIA [None]
  - RETRACTED NIPPLE [None]
  - SKULL MALFORMATION [None]
  - SPEECH DISORDER DEVELOPMENTAL [None]
